FAERS Safety Report 7605419-3 (Version None)
Quarter: 2011Q3

REPORT INFORMATION
  Report Type: 
  Country: None (occurrence: None)
  Receive Date: 20110705
  Receipt Date: 20110624
  Transmission Date: 20111222
  Serious: Yes (Hospitalization, Other)
  Sender: FDA-Public Use
  Company Number: GB-ACCORD-009675

PATIENT
  Age: 66 Year
  Sex: Female

DRUGS (5)
  1. SIMVASTATIN [Suspect]
     Indication: BLOOD CHOLESTEROL INCREASED
     Dosage: 40.00-MG
     Dates: start: 20100101, end: 20110228
  2. CLOZARIL [Suspect]
     Indication: PRODUCT USED FOR UNKNOWN INDICATION
     Dates: start: 20030101, end: 20110228
  3. ASPIRIN [Concomitant]
  4. LEVOTHYROXINE SODIUM [Concomitant]
  5. AMISULPRIDE (AMISULPRIDE) [Suspect]
     Indication: PRODUCT USED FOR UNKNOWN INDICATION
     Dosage: 300.00-MG / OROPHARINGEAL
     Route: 049
     Dates: start: 20030101, end: 20110228

REACTIONS (8)
  - HYPOTHYROIDISM [None]
  - ALANINE AMINOTRANSFERASE INCREASED [None]
  - PNEUMONIA [None]
  - INTERNATIONAL NORMALISED RATIO INCREASED [None]
  - LIVER FUNCTION TEST ABNORMAL [None]
  - BLOOD ALKALINE PHOSPHATASE INCREASED [None]
  - BLOOD BILIRUBIN INCREASED [None]
  - OVARIAN ADENOMA [None]
